FAERS Safety Report 24731445 (Version 1)
Quarter: 2024Q4

REPORT INFORMATION
  Report Type: Spontaneous
  Country: US (occurrence: US)
  Receive Date: 20241213
  Receipt Date: 20241213
  Transmission Date: 20250114
  Serious: Yes (Hospitalization)
  Sender: ACCORD
  Company Number: US-Accord-459988

PATIENT
  Age: 39 Year
  Sex: Male

DRUGS (5)
  1. FESOTERODINE [Suspect]
     Active Substance: FESOTERODINE
     Indication: Cystitis interstitial
  2. OXYBUTYNIN [Suspect]
     Active Substance: OXYBUTYNIN
     Indication: Cystitis interstitial
  3. KETAMINE HYDROCHLORIDE [Suspect]
     Active Substance: KETAMINE HYDROCHLORIDE
     Indication: Product used for unknown indication
  4. MIRABEGRON [Suspect]
     Active Substance: MIRABEGRON
     Indication: Cystitis interstitial
  5. TROSPIUM CHLORIDE [Suspect]
     Active Substance: TROSPIUM CHLORIDE
     Indication: Cystitis interstitial

REACTIONS (8)
  - Cystitis interstitial [Unknown]
  - Haematuria [Unknown]
  - Pyuria [Unknown]
  - Acute kidney injury [Unknown]
  - Chronic kidney disease [Unknown]
  - Hydronephrosis [Unknown]
  - Drug ineffective [Unknown]
  - Off label use [Unknown]
